FAERS Safety Report 6550670-7 (Version None)
Quarter: 2010Q1

REPORT INFORMATION
  Report Type: 
  Country: None (occurrence: None)
  Receive Date: 20100125
  Receipt Date: 20090609
  Transmission Date: 20100710
  Serious: No
  Sender: FDA-Public Use
  Company Number: US-TYCO HEALTHCARE/MALLINCKRODT-T200901177

PATIENT
  Sex: Male

DRUGS (8)
  1. OPTIRAY 350 [Suspect]
     Indication: COMPUTERISED TOMOGRAM ABDOMEN
     Dosage: 100 ML, SINGLE
     Route: 042
     Dates: start: 20090327, end: 20090327
  2. STATIN                             /00084401/ [Concomitant]
     Indication: BLOOD CHOLESTEROL
  3. ASPIRIN [Concomitant]
     Dosage: 81 MG, QD
  4. ATENOLOL [Concomitant]
  5. CALCIUM CARBONATE [Concomitant]
  6. VITAMIN D3 [Concomitant]
  7. HYDROCODONE [Concomitant]
     Dosage: UNK
  8. ACETAMINOPHEN W/ PROPOXYPHENE HCL [Concomitant]
     Dosage: UNK

REACTIONS (4)
  - PAIN OF SKIN [None]
  - PRURITUS [None]
  - RASH [None]
  - SKIN BURNING SENSATION [None]
